FAERS Safety Report 22587015 (Version 3)
Quarter: 2023Q4

REPORT INFORMATION
  Report Type: Report from Study
  Country: AU (occurrence: AU)
  Receive Date: 20230612
  Receipt Date: 20231005
  Transmission Date: 20240109
  Serious: Yes (Hospitalization)
  Sender: FDA-Public Use
  Company Number: AU-002147023-NVSC2023AU112826

PATIENT
  Age: 73 Year
  Sex: Male
  Weight: 59.1 kg

DRUGS (5)
  1. NIVOLUMAB [Suspect]
     Active Substance: NIVOLUMAB
     Indication: Hormone-refractory prostate cancer
     Dosage: 65 MG
     Route: 042
     Dates: start: 20221123, end: 20221214
  2. IPILIMUMAB [Suspect]
     Active Substance: IPILIMUMAB
     Indication: Hormone-refractory prostate cancer
     Dosage: 196 MG
     Route: 042
     Dates: start: 20221123, end: 20221123
  3. PLUVICTO [Suspect]
     Active Substance: LUTETIUM LU-177 VIPIVOTIDE TETRAXETAN
     Indication: Hormone-refractory prostate cancer
     Dosage: 7.5 GBQ
     Route: 042
     Dates: start: 20221124
  4. GASTROGRAFIN [Suspect]
     Active Substance: DIATRIZOATE MEGLUMINE\DIATRIZOATE SODIUM
     Indication: Product used for unknown indication
     Dosage: UNK
     Route: 065
  5. GOSERELIN [Concomitant]
     Active Substance: GOSERELIN
     Indication: Hormone-refractory prostate cancer
     Dosage: 10.8 MG, Q3MO
     Route: 065

REACTIONS (2)
  - Colitis [Recovered/Resolved]
  - Diarrhoea [Recovered/Resolved]

NARRATIVE: CASE EVENT DATE: 20221221
